FAERS Safety Report 18527856 (Version 1)
Quarter: 2020Q4

REPORT INFORMATION
  Report Type: Spontaneous
  Country: US (occurrence: US)
  Receive Date: 20201120
  Receipt Date: 20201120
  Transmission Date: 20210114
  Serious: Yes (Death, Hospitalization, Other)
  Sender: FDA-Public Use
  Company Number: US-AMGEN-USASP2020184413

PATIENT
  Age: 27 Year
  Sex: Female

DRUGS (3)
  1. PACLITAXEL. [Concomitant]
     Active Substance: PACLITAXEL
     Indication: METASTASES TO BONE
     Route: 065
  2. XGEVA [Suspect]
     Active Substance: DENOSUMAB
     Indication: METASTASES TO BONE
     Dosage: UNK
     Route: 065
  3. CARBOPLATIN. [Concomitant]
     Active Substance: CARBOPLATIN
     Indication: METASTASES TO BONE
     Route: 065

REACTIONS (8)
  - Death [Fatal]
  - Pneumonia [Unknown]
  - Cerebellar infarction [Unknown]
  - Pleural effusion [Unknown]
  - Gene mutation [Unknown]
  - Respiratory disorder [Unknown]
  - General physical health deterioration [Unknown]
  - Respiratory failure [Unknown]
